FAERS Safety Report 7857900-X (Version None)
Quarter: 2011Q4

REPORT INFORMATION
  Report Type: 
  Country: None (occurrence: None)
  Receive Date: 20111027
  Receipt Date: 20110216
  Transmission Date: 20120403
  Serious: No
  Sender: FDA-Public Use
  Company Number: US-BAYER-2011-016439

PATIENT
  Sex: Female
  Weight: 59 kg

DRUGS (2)
  1. ACETAMINOPHEN [Concomitant]
     Indication: BACK PAIN
     Dosage: DAILY DOSE 1 DF
     Route: 048
     Dates: start: 20110215
  2. ALEVE (CAPLET) [Suspect]
     Indication: BACK PAIN
     Dosage: DAILY DOSE 1 DF
     Route: 048
     Dates: start: 20110215, end: 20110216

REACTIONS (2)
  - NAUSEA [None]
  - DRUG INEFFECTIVE [None]
